APPROVED DRUG PRODUCT: WELCHOL
Active Ingredient: COLESEVELAM HYDROCHLORIDE
Strength: 3.75GM/PACKET
Dosage Form/Route: FOR SUSPENSION;ORAL
Application: N022362 | Product #002 | TE Code: AB
Applicant: COSETTE PHARMACEUTICALS INC
Approved: Oct 2, 2009 | RLD: Yes | RS: Yes | Type: RX